FAERS Safety Report 8509254-3 (Version None)
Quarter: 2012Q3

REPORT INFORMATION
  Report Type: 
  Country: None (occurrence: None)
  Receive Date: 20120713
  Receipt Date: 20100415
  Transmission Date: 20120928
  Serious: Yes (Congenital Anomaly, Other)
  Sender: FDA-Public Use
  Company Number: DE-ROCHE-1081776

PATIENT
  Age: 28 Day
  Sex: Female

DRUGS (14)
  1. VAGIFLOR [Concomitant]
     Indication: VAGINAL INFECTION
     Route: 064
     Dates: start: 20090918
  2. ACICLOSTAD [Concomitant]
     Indication: HERPES ZOSTER
     Route: 064
     Dates: start: 20090615
  3. VALIUM [Suspect]
     Indication: ANXIETY DISORDER
     Route: 064
     Dates: start: 20090925
  4. PARTUSISTEN [Concomitant]
     Indication: PREMATURE LABOUR
     Route: 064
     Dates: start: 20090918
  5. CEFAZOLIN [Concomitant]
     Indication: URINARY TRACT INFECTION
     Route: 064
     Dates: start: 20090922
  6. FRAGMIN [Concomitant]
     Indication: THROMBOSIS PROPHYLAXIS
     Route: 064
  7. ARILIN [Concomitant]
     Indication: VAGINAL INFECTION
     Route: 064
     Dates: start: 20090922, end: 20090927
  8. CEFUROXIME [Concomitant]
     Indication: URINARY TRACT INFECTION
     Route: 064
     Dates: start: 20091028
  9. CELESTAN [Concomitant]
     Route: 064
     Dates: start: 20090922, end: 20090923
  10. ACETAMINOPHEN [Concomitant]
     Indication: PAIN
     Route: 064
     Dates: start: 20090925
  11. BUSCOPAN [Concomitant]
     Indication: PAIN
     Route: 064
     Dates: start: 20090925
  12. INIMUR [Concomitant]
     Indication: VAGINAL INFECTION
     Route: 064
  13. ECONAZOLE NITRATE [Concomitant]
     Indication: VULVOVAGINAL CANDIDIASIS
     Route: 064
     Dates: start: 20090929
  14. HEXETIDINE [Concomitant]
     Indication: VULVOVAGINAL CANDIDIASIS
     Dosage: VAGI-HEX
     Route: 064
     Dates: start: 20090929

REACTIONS (9)
  - RIGHT VENTRICULAR HYPERTROPHY [None]
  - CONGENITAL HYDRONEPHROSIS [None]
  - CONGENITAL MEGAURETER [None]
  - MATERNAL EXPOSURE TIMING UNSPECIFIED [None]
  - ATRIAL SEPTAL DEFECT [None]
  - PULMONARY HYPERTENSION [None]
  - DYSMORPHISM [None]
  - SPINAL DEFORMITY [None]
  - CHONDRODYSTROPHY [None]
